FAERS Safety Report 6342362-4 (Version None)
Quarter: 2009Q3

REPORT INFORMATION
  Report Type: 
  Country: None (occurrence: None)
  Receive Date: 20090907
  Receipt Date: 20090831
  Transmission Date: 20100115
  Serious: Yes (Other)
  Sender: FDA-Public Use
  Company Number: HN-ELI_LILLY_AND_COMPANY-HN200908005867

PATIENT
  Age: 72 Year
  Sex: Female

DRUGS (8)
  1. PEMETREXED [Suspect]
     Indication: LUNG NEOPLASM MALIGNANT
     Dosage: 500 MG, OTHER
     Route: 042
     Dates: start: 20090814
  2. HYDROCODONE [Concomitant]
     Indication: VERTEBRAL INJURY
     Dosage: UNK, UNKNOWN
     Route: 065
  3. OMEPRAZOL [Concomitant]
     Indication: PROPHYLAXIS
     Dosage: UNK, UNKNOWN
     Route: 065
  4. LACTULOSE [Concomitant]
     Indication: CONSTIPATION
     Dosage: UNK, UNKNOWN
     Route: 065
  5. LEVOTHYROXINE [Concomitant]
     Indication: HYPOTHYROIDISM
     Dosage: UNK, UNKNOWN
     Route: 065
  6. FOLIC ACID [Concomitant]
     Indication: SUPPLEMENTATION THERAPY
  7. CYANOCOBALAMIN [Concomitant]
     Indication: SUPPLEMENTATION THERAPY
  8. IRON [Concomitant]
     Indication: HAEMOPTYSIS
     Dosage: UNK, UNKNOWN
     Route: 030

REACTIONS (1)
  - HAEMOPTYSIS [None]
